FAERS Safety Report 14835151 (Version 3)
Quarter: 2021Q3

REPORT INFORMATION
  Report Type: Spontaneous
  Country: NL (occurrence: NL)
  Receive Date: 20180501
  Receipt Date: 20210730
  Transmission Date: 20211014
  Serious: Yes (Life-Threatening, Hospitalization, Other)
  Sender: FDA-Public Use
  Company Number: PHHY2017NL202682

PATIENT
  Age: 53 Year
  Sex: Female

DRUGS (5)
  1. CALCIUM [Suspect]
     Active Substance: CALCIUM
     Dosage: 3000 MG/H, UNK
     Route: 065
  2. CALCIUM [Suspect]
     Active Substance: CALCIUM
     Dosage: 3000 MG, UNK
     Route: 065
  3. CALCIUM [Suspect]
     Active Substance: CALCIUM
     Indication: PRODUCT USED FOR UNKNOWN INDICATION
     Dosage: 6000 MG/H, UNK
     Route: 065
  4. CALCIUM [Suspect]
     Active Substance: CALCIUM
     Dosage: 1000 MG, UNK
     Route: 065
  5. DILTIAZEM. [Suspect]
     Active Substance: DILTIAZEM
     Indication: PRODUCT USED FOR UNKNOWN INDICATION
     Dosage: 4800 MG, QD
     Route: 065

REACTIONS (14)
  - Toxicity to various agents [Unknown]
  - Reperfusion injury [Recovering/Resolving]
  - Cardiogenic shock [Recovering/Resolving]
  - Ischaemia [Recovering/Resolving]
  - Atrioventricular block complete [Recovering/Resolving]
  - Urinary incontinence [Unknown]
  - Hyperglycaemia [Unknown]
  - Intentional overdose [Recovered/Resolved]
  - Vomiting [Unknown]
  - Hypercalcaemia [Unknown]
  - Lactic acidosis [Recovering/Resolving]
  - Depressed level of consciousness [Unknown]
  - Overdose [Unknown]
  - Pancreatitis necrotising [Recovered/Resolved]
